FAERS Safety Report 21263107 (Version 2)
Quarter: 2022Q3

REPORT INFORMATION
  Report Type: Spontaneous
  Country: US (occurrence: US)
  Receive Date: 20220828
  Receipt Date: 20220907
  Transmission Date: 20221027
  Serious: No
  Sender: FDA-Public Use
  Company Number: US-AMGEN-USASP2022146750

PATIENT
  Age: 22 Year
  Sex: Male

DRUGS (2)
  1. OTEZLA [Suspect]
     Active Substance: APREMILAST
     Indication: Product used for unknown indication
     Dosage: 30 MILLIGRAM, BID
     Route: 048
     Dates: start: 20201219
  2. LEXAPRO [Concomitant]
     Active Substance: ESCITALOPRAM OXALATE
     Dosage: 10 MILLIGRAM

REACTIONS (3)
  - Condition aggravated [Unknown]
  - Off label use [Unknown]
  - Therapy non-responder [Unknown]

NARRATIVE: CASE EVENT DATE: 20201219
